FAERS Safety Report 4273967-2 (Version None)
Quarter: 2004Q1

REPORT INFORMATION
  Report Type: 
  Country: None (occurrence: None)
  Receive Date: 20040115
  Receipt Date: 20040108
  Transmission Date: 20041129
  Serious: Yes (Hospitalization)
  Sender: FDA-Public Use
  Company Number: 2003186208AT

PATIENT
  Age: 8 Year
  Sex: Male

DRUGS (2)
  1. GENOTROPIN [Suspect]
     Indication: HYPOPITUITARISM
     Dates: start: 20010101, end: 20031105
  2. PHENOBARBITAL TAB [Concomitant]

REACTIONS (6)
  - ACCIDENT [None]
  - CONCUSSION [None]
  - HEMIPARESIS [None]
  - ISCHAEMIA [None]
  - RESPIRATORY TRACT INFECTION [None]
  - SOMNOLENCE [None]
